FAERS Safety Report 9372442 (Version 1)
Quarter: 2013Q2

REPORT INFORMATION
  Report Type: Report from Study
  Country: US (occurrence: US)
  Receive Date: 20130627
  Receipt Date: 20130627
  Transmission Date: 20140414
  Serious: Yes (Hospitalization, Other)
  Sender: FDA-Public Use
  Company Number: US-MYLANLABS-2012S1024332

PATIENT
  Age: 17 Year
  Sex: Male
  Weight: 96.16 kg

DRUGS (7)
  1. CLOZAPINE TABLETS [Suspect]
     Indication: BIPOLAR DISORDER
     Route: 048
     Dates: start: 20120313, end: 20121121
  2. CLOZAPINE TABLETS [Suspect]
     Indication: SCHIZOAFFECTIVE DISORDER
     Route: 048
     Dates: start: 20120313, end: 20121121
  3. CLOZAPINE TABLETS [Suspect]
     Route: 048
     Dates: end: 20121204
  4. ABILIFY [Concomitant]
  5. CLONIDINE [Concomitant]
  6. METFORMIN [Concomitant]
  7. LORATADINE [Concomitant]

REACTIONS (3)
  - Granulocytopenia [Not Recovered/Not Resolved]
  - Viral infection [Not Recovered/Not Resolved]
  - Neutrophil count decreased [Recovered/Resolved]
